FAERS Safety Report 24798814 (Version 3)
Quarter: 2025Q3

REPORT INFORMATION
  Report Type: Spontaneous
  Country: EU (occurrence: EU)
  Receive Date: 20250102
  Receipt Date: 20250818
  Transmission Date: 20251020
  Serious: Yes (Hospitalization, Other)
  Sender: CELLTRION
  Company Number: EU-GILEAD-2024-0677262

PATIENT

DRUGS (22)
  1. RITUXIMAB [Suspect]
     Active Substance: RITUXIMAB
     Indication: Burkitt^s lymphoma
     Route: 065
     Dates: start: 20240430, end: 20240514
  2. RITUXIMAB [Suspect]
     Active Substance: RITUXIMAB
     Route: 065
     Dates: start: 20240430, end: 20240514
  3. RITUXIMAB [Suspect]
     Active Substance: RITUXIMAB
     Route: 065
     Dates: start: 20240430, end: 20240514
  4. GEMCITABINE HYDROCHLORIDE\OXALIPLATIN [Suspect]
     Active Substance: GEMCITABINE HYDROCHLORIDE\OXALIPLATIN
     Indication: Burkitt^s lymphoma
     Route: 065
     Dates: start: 20240430, end: 20240514
  5. GEMCITABINE HYDROCHLORIDE\OXALIPLATIN [Suspect]
     Active Substance: GEMCITABINE HYDROCHLORIDE\OXALIPLATIN
     Route: 065
     Dates: start: 20240430, end: 20240514
  6. GEMCITABINE HYDROCHLORIDE\OXALIPLATIN [Suspect]
     Active Substance: GEMCITABINE HYDROCHLORIDE\OXALIPLATIN
     Route: 065
     Dates: start: 20240430, end: 20240514
  7. BREXUCABTAGENE AUTOLEUCEL [Suspect]
     Active Substance: BREXUCABTAGENE AUTOLEUCEL
     Indication: Burkitt^s lymphoma
     Route: 042
     Dates: start: 20240613, end: 20240613
  8. CYCLOPHOSPHAMIDE [Suspect]
     Active Substance: CYCLOPHOSPHAMIDE
     Indication: Bone marrow conditioning regimen
     Route: 065
     Dates: start: 20240608, end: 20240608
  9. CYCLOPHOSPHAMIDE [Suspect]
     Active Substance: CYCLOPHOSPHAMIDE
     Route: 065
     Dates: start: 20240609, end: 20240609
  10. CYCLOPHOSPHAMIDE [Suspect]
     Active Substance: CYCLOPHOSPHAMIDE
     Route: 065
     Dates: start: 20240610, end: 20240610
  11. FLUDARABINE [Suspect]
     Active Substance: FLUDARABINE PHOSPHATE
     Indication: Bone marrow conditioning regimen
     Route: 065
     Dates: start: 20240608, end: 20240608
  12. FLUDARABINE [Suspect]
     Active Substance: FLUDARABINE PHOSPHATE
     Route: 065
     Dates: start: 20240609, end: 20240609
  13. FLUDARABINE [Suspect]
     Active Substance: FLUDARABINE PHOSPHATE
     Route: 065
     Dates: start: 20240610, end: 20240610
  14. MESNA [Suspect]
     Active Substance: MESNA
     Indication: Prophylaxis
     Route: 065
     Dates: start: 20240608, end: 20240608
  15. MESNA [Suspect]
     Active Substance: MESNA
     Route: 065
     Dates: start: 20240608, end: 20240608
  16. MESNA [Suspect]
     Active Substance: MESNA
     Route: 065
     Dates: start: 20240609, end: 20240609
  17. MESNA [Suspect]
     Active Substance: MESNA
     Route: 065
     Dates: start: 20240609, end: 20240609
  18. MESNA [Suspect]
     Active Substance: MESNA
     Route: 065
     Dates: start: 20240610, end: 20240610
  19. MESNA [Suspect]
     Active Substance: MESNA
     Route: 065
     Dates: start: 20240610, end: 20240610
  20. POLYETHYLENE GLYCOLS [Concomitant]
     Active Substance: POLYETHYLENE GLYCOLS
     Route: 048
     Dates: start: 2024
  21. OLANZAPINE [Concomitant]
     Active Substance: OLANZAPINE
     Route: 048
     Dates: start: 2024
  22. PANTOPRAZOLE [Concomitant]
     Active Substance: PANTOPRAZOLE
     Route: 048
     Dates: start: 2024

REACTIONS (2)
  - Immune effector cell-associated neurotoxicity syndrome [Unknown]
  - Intentional product use issue [Unknown]

NARRATIVE: CASE EVENT DATE: 20240618
